FAERS Safety Report 16285493 (Version 1)
Quarter: 2019Q2

REPORT INFORMATION
  Report Type: Spontaneous
  Country: US (occurrence: US)
  Receive Date: 20190508
  Receipt Date: 20190508
  Transmission Date: 20190711
  Serious: Yes (Other)
  Sender: FDA-Public Use
  Company Number: US-JNJFOC-20190501738

PATIENT
  Age: 61 Year
  Sex: Female

DRUGS (1)
  1. SPRAVATO [Suspect]
     Active Substance: ESKETAMINE
     Indication: PRODUCT USED FOR UNKNOWN INDICATION
     Route: 045
     Dates: start: 20190430

REACTIONS (4)
  - Hypoaesthesia [Unknown]
  - Hypoaesthesia oral [Unknown]
  - Dysarthria [Unknown]
  - Lethargy [Unknown]

NARRATIVE: CASE EVENT DATE: 20190430
